FAERS Safety Report 18188696 (Version 3)
Quarter: 2020Q3

REPORT INFORMATION
  Report Type: Spontaneous
  Country: FR (occurrence: FR)
  Receive Date: 20200824
  Receipt Date: 20200916
  Transmission Date: 20201103
  Serious: Yes (Other)
  Sender: FDA-Public Use
  Company Number: ALC2020FR006636

PATIENT

DRUGS (2)
  1. DUOVISC VISCO ELASTIC SYSYTEM [Suspect]
     Active Substance: CHONDROITIN SULFATE SODIUM NOS\HYALURONATE SODIUM
     Indication: PRODUCT USED FOR UNKNOWN INDICATION
     Dosage: UNK
     Route: 065
  2. BSS [Suspect]
     Active Substance: CALCIUM CHLORIDE\MAGNESIUM CHLORIDE\POTASSIUM CHLORIDE\SODIUM ACETATE\SODIUM CHLORIDE\SODIUM CITRATE
     Indication: IRRIGATION THERAPY
     Dosage: UNK
     Route: 065
     Dates: start: 20200811, end: 20200811

REACTIONS (6)
  - Intraocular pressure increased [Unknown]
  - Vitreous haemorrhage [Unknown]
  - Vitritis [Unknown]
  - Endophthalmitis [Unknown]
  - Hypopyon [Unknown]
  - Corneal oedema [Unknown]

NARRATIVE: CASE EVENT DATE: 20200813
